FAERS Safety Report 23163523 (Version 2)
Quarter: 2023Q4

REPORT INFORMATION
  Report Type: Spontaneous
  Country: BT (occurrence: BT)
  Receive Date: 20231109
  Receipt Date: 20231125
  Transmission Date: 20240110
  Serious: Yes (Other)
  Sender: FDA-Public Use
  Company Number: BT-MACLEODS PHARMACEUTICALS US LTD-MAC2023044189

PATIENT

DRUGS (1)
  1. TRIAMCINOLONE ACETONIDE [Suspect]
     Active Substance: TRIAMCINOLONE ACETONIDE
     Indication: Oral submucosal fibrosis
     Dosage: 1 MILLILITER (INJECTION, TWICE A WEEK)
     Route: 026

REACTIONS (1)
  - Pseudo Cushing^s syndrome [Unknown]
